FAERS Safety Report 4650552-1 (Version None)
Quarter: 2005Q2

REPORT INFORMATION
  Report Type: 
  Country: None (occurrence: None)
  Receive Date: 20050429
  Receipt Date: 20050421
  Transmission Date: 20051028
  Serious: Yes (Hospitalization)
  Sender: FDA-Public Use
  Company Number: 2005-01369

PATIENT
  Age: 59 Year
  Sex: Female

DRUGS (9)
  1. PREDNISONE [Suspect]
     Indication: ASTHMA
     Dosage: 40 MG, (SUBSEQUENTLY TAPERED), ORAL
     Route: 048
     Dates: start: 20050217
  2. PREDNISONE [Suspect]
     Indication: CHRONIC OBSTRUCTIVE PULMONARY DISEASE
     Dosage: 40 MG, (SUBSEQUENTLY TAPERED), ORAL
     Route: 048
     Dates: start: 20050217
  3. LASIX [Concomitant]
  4. COZAAR [Concomitant]
  5. ALDACTONE [Concomitant]
  6. LANOXIN [Concomitant]
  7. ALBUTEROL [Concomitant]
  8. GUAIFENESIN [Concomitant]
  9. DESLORATADINE (DESLORATADINE) [Concomitant]

REACTIONS (5)
  - DISORIENTATION [None]
  - DIZZINESS [None]
  - DRUG WITHDRAWAL SYNDROME [None]
  - FALL [None]
  - HYPOAESTHESIA [None]
